FAERS Safety Report 9834835 (Version 2)
Quarter: 2014Q1

REPORT INFORMATION
  Report Type: Spontaneous
  Country: US (occurrence: US)
  Receive Date: 20140122
  Receipt Date: 20140221
  Transmission Date: 20141002
  Serious: Yes (Hospitalization, Other)
  Sender: FDA-Public Use
  Company Number: US-MERCK-1401USA008343

PATIENT
  Age: 64 Year
  Sex: Male
  Weight: 85.71 kg

DRUGS (8)
  1. JANUVIA [Suspect]
     Indication: DIABETES MELLITUS
     Dosage: 50/500 DF, BID
     Route: 048
     Dates: start: 20111013, end: 20140116
  2. LESCOL XL [Concomitant]
     Indication: HYPERLIPIDAEMIA
     Dosage: 80 MG, QD
     Route: 048
     Dates: start: 20120124
  3. RAMPRIL [Concomitant]
     Indication: HYPERTENSION
     Dosage: 2.5 MG, QD
     Route: 048
     Dates: start: 2012
  4. METOPROLOL [Concomitant]
     Indication: CORONARY ARTERY DISEASE
     Dosage: 50 MG, QD
     Route: 048
     Dates: start: 2004
  5. TRILIPIX [Concomitant]
     Indication: HYPERLIPIDAEMIA
     Dosage: 135 MG, QD
     Route: 048
     Dates: start: 2010
  6. METHOTREXATE [Concomitant]
     Indication: RHEUMATOID ARTHRITIS
     Dosage: 7.5 MG, QW
     Route: 048
     Dates: start: 2008
  7. SULFASALAZINE [Concomitant]
     Dosage: 1000 MG, QD
  8. ASPIRIN [Concomitant]
     Dosage: 325 MG, UNK

REACTIONS (1)
  - Pancreatitis [Recovered/Resolved]
